FAERS Safety Report 9059125 (Version 1)
Quarter: 2013Q1

REPORT INFORMATION
  Report Type: Spontaneous
  Country: US (occurrence: US)
  Receive Date: 20130211
  Receipt Date: 20130211
  Transmission Date: 20140127
  Serious: No
  Sender: FDA-Public Use
  Company Number: US-BRISTOL-MYERS SQUIBB COMPANY-16961609

PATIENT
  Sex: Female

DRUGS (3)
  1. METFORMIN HCL [Suspect]
     Dates: start: 2002
  2. GLIMEPIRIDE [Suspect]
     Dosage: TABS
     Route: 048
  3. RESTASIS [Concomitant]

REACTIONS (2)
  - Hyperglycaemia [Unknown]
  - Glycosylated haemoglobin increased [Unknown]
